FAERS Safety Report 21183342 (Version 1)
Quarter: 2022Q3

REPORT INFORMATION
  Report Type: Other
  Country: JP (occurrence: None)
  Receive Date: 20220808
  Receipt Date: 20220808
  Transmission Date: 20221027
  Serious: Yes (Other)
  Sender: FDA-Public Use
  Company Number: JP-ROCHE-3152685

PATIENT
  Age: 81 Year
  Sex: Male

DRUGS (3)
  1. ATEZOLIZUMAB [Suspect]
     Active Substance: ATEZOLIZUMAB
     Indication: Mixed hepatocellular cholangiocarcinoma
     Route: 041
  2. BEVACIZUMAB [Suspect]
     Active Substance: BEVACIZUMAB
     Indication: Mixed hepatocellular cholangiocarcinoma
     Route: 042
  3. TS-1 [Concomitant]
     Active Substance: GIMERACIL\OTERACIL\TEGAFUR

REACTIONS (6)
  - Ascites [Unknown]
  - Fatigue [Unknown]
  - Decreased appetite [Unknown]
  - Proteinuria [Unknown]
  - Disease progression [Unknown]
  - Drug ineffective [Unknown]
